FAERS Safety Report 5397657-8 (Version None)
Quarter: 2007Q3

REPORT INFORMATION
  Report Type: 
  Country: None (occurrence: None)
  Receive Date: 20070723
  Receipt Date: 20070723
  Transmission Date: 20080115
  Serious: Yes (Hospitalization)
  Sender: FDA-Public Use
  Company Number: None

PATIENT
  Sex: Female
  Weight: 64 kg

DRUGS (9)
  1. CYTARABINE [Suspect]
     Dosage: 3000 MG
  2. ETOPOSIDE [Suspect]
  3. IFOSFAMIDE [Suspect]
  4. LEUCOVORIN CALCIUM [Suspect]
  5. MESNA [Suspect]
  6. METHOTREXATE [Suspect]
  7. RITUXIMAB (MOAB C2B8 ANTI CD20, CHIMERIC) [Suspect]
  8. VINCRISTINE SULFATE [Suspect]
  9. NEUPOGEN [Concomitant]

REACTIONS (8)
  - CHROMATURIA [None]
  - HAEMOGLOBIN DECREASED [None]
  - HYPOKALAEMIA [None]
  - NEUTROPENIA [None]
  - ORAL PAIN [None]
  - PHARYNGOLARYNGEAL PAIN [None]
  - PYREXIA [None]
  - WHITE BLOOD CELL COUNT DECREASED [None]
